FAERS Safety Report 8156203-6 (Version None)
Quarter: 2012Q1

REPORT INFORMATION
  Report Type: 
  Country: None (occurrence: None)
  Receive Date: 20120103
  Receipt Date: 20111026
  Transmission Date: 20120608
  Serious: No
  Sender: FDA-Public Use
  Company Number: AE-2011-002721

PATIENT
  Age: 62 Year
  Sex: Male
  Weight: 92.5338 kg

DRUGS (6)
  1. ACETAMINOPHEN [Concomitant]
  2. RIBAVIRIN [Concomitant]
  3. CARVEDILOL [Concomitant]
  4. TRIAMTERENE/HCTZ (DYAZIDE) [Concomitant]
  5. PEGASYS [Concomitant]
  6. INCIVEK [Suspect]
     Dosage: 2250 MG (750 MG, 1 IN 8 HR), ORAL
     Route: 048
     Dates: start: 20111016

REACTIONS (5)
  - DECREASED APPETITE [None]
  - ANORECTAL DISCOMFORT [None]
  - HAEMORRHOIDAL HAEMORRHAGE [None]
  - NAUSEA [None]
  - DYSGEUSIA [None]
